FAERS Safety Report 21231734 (Version 1)
Quarter: 2022Q3

REPORT INFORMATION
  Report Type: Report from Study
  Country: MX (occurrence: MX)
  Receive Date: 20220819
  Receipt Date: 20220819
  Transmission Date: 20221027
  Serious: Yes (Death, Other)
  Sender: FDA-Public Use
  Company Number: MX-ROCHE-2998385

PATIENT
  Age: 85 Year
  Sex: Female

DRUGS (1)
  1. MIRCERA [Suspect]
     Active Substance: METHOXY POLYETHYLENE GLYCOL-EPOETIN BETA
     Indication: Anaemia
     Dosage: ERYTHROPOYETIN BETA PRE-FILLED SYRINGE 100 MCG-0.3ML
     Route: 058
     Dates: start: 20211213, end: 20220804

REACTIONS (14)
  - Hepatic failure [Fatal]
  - Renal failure [Fatal]
  - Hepatitis C [Recovered/Resolved]
  - Haemoglobin decreased [Not Recovered/Not Resolved]
  - Anaemia [Unknown]
  - Malaise [Unknown]
  - Oedema [Not Recovered/Not Resolved]
  - Blister [Unknown]
  - Unevaluable event [Unknown]
  - Dyspnoea [Unknown]
  - Mobility decreased [Unknown]
  - COVID-19 [Recovered/Resolved]
  - Product prescribing error [Unknown]
  - Drug ineffective [Unknown]

NARRATIVE: CASE EVENT DATE: 20211201
